FAERS Safety Report 15887111 (Version 2)
Quarter: 2019Q1

REPORT INFORMATION
  Report Type: Spontaneous
  Country: US (occurrence: US)
  Receive Date: 20190130
  Receipt Date: 20190319
  Transmission Date: 20190417
  Serious: Yes (Hospitalization, Other)
  Sender: FDA-Public Use
  Company Number: US-PFIZER INC-2019037451

PATIENT
  Age: 72 Year
  Sex: Female
  Weight: 59 kg

DRUGS (2)
  1. LYRICA [Suspect]
     Active Substance: PREGABALIN
     Dosage: 150 MG, 2X/DAY
     Route: 048
     Dates: start: 20190122
  2. LYRICA [Suspect]
     Active Substance: PREGABALIN
     Indication: FIBROMYALGIA
     Dosage: 225 MG, UNK
     Route: 048

REACTIONS (2)
  - Intracranial aneurysm [Not Recovered/Not Resolved]
  - Product prescribing error [Unknown]

NARRATIVE: CASE EVENT DATE: 2018
